FAERS Safety Report 14899485 (Version 1)
Quarter: 2018Q2

REPORT INFORMATION
  Report Type: Spontaneous
  Country: JP (occurrence: JP)
  Receive Date: 20180516
  Receipt Date: 20180516
  Transmission Date: 20180711
  Serious: Yes (Hospitalization, Other)
  Sender: FDA-Public Use
  Company Number: JP-BRISTOL-MYERS SQUIBB COMPANY-BMS-2018-044388

PATIENT
  Age: 70 Year
  Sex: Male

DRUGS (1)
  1. NIVOLUMAB [Suspect]
     Active Substance: NIVOLUMAB
     Indication: ADENOCARCINOMA
     Dosage: 3 MG/KG, UNK
     Route: 065
     Dates: start: 201703

REACTIONS (4)
  - Rash [Unknown]
  - Sialoadenitis [Recovering/Resolving]
  - Colitis [Unknown]
  - Amylase increased [Unknown]

NARRATIVE: CASE EVENT DATE: 201705
